FAERS Safety Report 5032467-2 (Version None)
Quarter: 2006Q2

REPORT INFORMATION
  Report Type: 
  Country: None (occurrence: None)
  Receive Date: 20060620
  Receipt Date: 20060525
  Transmission Date: 20061013
  Serious: Yes (Hospitalization)
  Sender: FDA-Public Use
  Company Number: AZAUS200600193

PATIENT
  Age: 74 Year
  Sex: Female

DRUGS (8)
  1. AZACITIDINE (AZACITIDINE) (INJECTION) [Suspect]
     Indication: ACUTE MYELOID LEUKAEMIA
     Dosage: (DAILY X 7 DAYS), SUBCUTANEOUS
     Route: 058
     Dates: start: 20060413, end: 20060419
  2. MGCD0103 [Suspect]
     Indication: ACUTE MYELOID LEUKAEMIA
     Dosage: 90 MG (THREE TIMES WEEKLY), ORAL
     Route: 048
     Dates: start: 20060417
  3. ACYCLOVIR [Concomitant]
  4. LEVAQUIN [Concomitant]
  5. COMPAZINE [Concomitant]
  6. AMBIEN [Concomitant]
  7. BENADRYL [Concomitant]
  8. ACETAMINOPHEN [Concomitant]

REACTIONS (4)
  - HYPOXIA [None]
  - NEUTROPENIA [None]
  - PNEUMONIA FUNGAL [None]
  - THERAPY NON-RESPONDER [None]
